FAERS Safety Report 5074956-0 (Version None)
Quarter: 2006Q3

REPORT INFORMATION
  Report Type: 
  Country: None (occurrence: None)
  Receive Date: 20060804
  Receipt Date: 20060525
  Transmission Date: 20061208
  Serious: Yes (Other)
  Sender: FDA-Public Use
  Company Number: 2006072397

PATIENT
  Age: 46 Year
  Sex: Female

DRUGS (1)
  1. BEXTRA [Suspect]
     Indication: PAIN IN EXTREMITY
     Dosage: 10 MG (10 MG, 1 IN 1 D)
     Dates: start: 20050301

REACTIONS (4)
  - CELLULITIS [None]
  - DERMATITIS [None]
  - EPISTAXIS [None]
  - HYPERTENSION [None]
